FAERS Safety Report 9899895 (Version 2)
Quarter: 2014Q1

REPORT INFORMATION
  Report Type: Report from Study
  Country: TH (occurrence: TH)
  Receive Date: 20140214
  Receipt Date: 20140214
  Transmission Date: 20141002
  Serious: Yes (Death, Hospitalization)
  Sender: FDA-Public Use
  Company Number: TH-BRISTOL-MYERS SQUIBB COMPANY-19888817

PATIENT
  Age: 34 Year
  Sex: Female
  Weight: 38.25 kg

DRUGS (6)
  1. STOCRIN CAPS [Suspect]
     Indication: HIV INFECTION
     Dosage: LAST DOSE:21NOV13
     Route: 048
     Dates: start: 20120111
  2. DIDANOSINE [Suspect]
     Indication: HIV INFECTION
     Dosage: LAST DOSE:21NOV13
     Route: 048
     Dates: start: 20120111
  3. LAMIVUDINE [Suspect]
     Indication: HIV INFECTION
     Dosage: TABS,18JUL05-01JUL09,28MAR11-12SEP11?LAST DOSE ON 21NOV2013
     Route: 048
     Dates: start: 20120111
  4. SODIUM PHOSPHATE [Concomitant]
     Dosage: SOLN
  5. ALFACALCIDOL [Concomitant]
  6. FOLIC ACID [Concomitant]

REACTIONS (2)
  - Disease progression [Fatal]
  - Systemic lupus erythematosus [Not Recovered/Not Resolved]
